FAERS Safety Report 11357922 (Version 1)
Quarter: 2015Q3

REPORT INFORMATION
  Report Type: Spontaneous
  Country: US (occurrence: US)
  Receive Date: 20150803
  Receipt Date: 20150803
  Transmission Date: 20151125
  Serious: No
  Sender: FDA-Public Use
  Company Number: US-ELI_LILLY_AND_COMPANY-US201005006635

PATIENT
  Age: 73 Year

DRUGS (9)
  1. STRATTERA [Suspect]
     Active Substance: ATOMOXETINE HYDROCHLORIDE
     Indication: MENTAL DISORDER
     Dosage: 40 MG, DAILY (1/D)
  2. LITHIUM. [Concomitant]
     Active Substance: LITHIUM
     Dosage: 450 MG, DAILY (1/D)
  3. METFORMIN [Concomitant]
     Active Substance: METFORMIN HYDROCHLORIDE
     Dosage: 1000 MG, 2/D
  4. ACTOS [Concomitant]
     Active Substance: PIOGLITAZONE HYDROCHLORIDE
     Dosage: 45 MG, UNK
  5. PLAVIX [Concomitant]
     Active Substance: CLOPIDOGREL BISULFATE
     Dosage: 75 MG, UNK
  6. LEVOXYL [Concomitant]
     Active Substance: LEVOTHYROXINE SODIUM
     Dosage: 25 MG, UNK
  7. MIRAPEX [Concomitant]
     Active Substance: PRAMIPEXOLE DIHYDROCHLORIDE
     Dosage: 25 MG, DAILY (1/D)
  8. ASA [Concomitant]
     Active Substance: ASPIRIN
     Dosage: 81 MG, UNK
  9. ALTACE [Concomitant]
     Active Substance: RAMIPRIL
     Dosage: 1.25 MG, UNK

REACTIONS (7)
  - Constipation [Unknown]
  - Dizziness [Unknown]
  - Insomnia [Unknown]
  - Off label use [Unknown]
  - Somnolence [Unknown]
  - Mood swings [Unknown]
  - Nausea [Unknown]
